FAERS Safety Report 6200258-2 (Version None)
Quarter: 2009Q2

REPORT INFORMATION
  Report Type: 
  Country: None (occurrence: None)
  Receive Date: 20090522
  Receipt Date: 20090520
  Transmission Date: 20091009
  Serious: Yes (Life-Threatening, Hospitalization)
  Sender: FDA-Public Use
  Company Number: FR-ABBOTT-09P-056-0574783-00

PATIENT
  Sex: Female

DRUGS (5)
  1. DEPAKOTE [Suspect]
     Indication: INTENTIONAL OVERDOSE
     Route: 048
     Dates: start: 20090416, end: 20090416
  2. DEPAKOTE [Concomitant]
     Indication: DEPRESSION
     Route: 048
     Dates: start: 20040101
  3. SEROPLEX [Concomitant]
     Indication: DEPRESSION
     Dates: start: 20040101
  4. NOCTRAN [Concomitant]
     Indication: DEPRESSION
     Route: 048
     Dates: start: 20040101
  5. LARGACTIL [Concomitant]
     Indication: DEPRESSION
     Dates: start: 20040101

REACTIONS (4)
  - DRUG LEVEL ABOVE THERAPEUTIC [None]
  - HYPOACUSIS [None]
  - INTENTIONAL OVERDOSE [None]
  - VOMITING [None]
